FAERS Safety Report 8492747-5 (Version None)
Quarter: 2012Q3

REPORT INFORMATION
  Report Type: 
  Country: None (occurrence: None)
  Receive Date: 20120706
  Receipt Date: 20120703
  Transmission Date: 20120928
  Serious: Yes (Death, Other)
  Sender: FDA-Public Use
  Company Number: GB-B.I. PHARMACEUTICALS,INC./RIDGEFIELD-2012-UK-00872UK

PATIENT
  Age: 72 Year
  Sex: Male

DRUGS (8)
  1. PRADAXA [Suspect]
     Indication: ATRIAL FIBRILLATION
     Dosage: 110 MG
     Route: 048
     Dates: start: 20120614, end: 20120621
  2. ZEBETA [Concomitant]
  3. QUININE SULFATE [Concomitant]
  4. SENNA-MINT WAF [Concomitant]
  5. PRADAXA [Suspect]
     Indication: CARDIOVASCULAR EVENT PROPHYLAXIS
  6. SIMVASTATIN [Concomitant]
  7. LACTULOSE [Concomitant]
  8. WARFARIN SODIUM [Concomitant]

REACTIONS (2)
  - MELAENA [None]
  - GASTROINTESTINAL HAEMORRHAGE [None]
